FAERS Safety Report 12172443 (Version 1)
Quarter: 2016Q1

REPORT INFORMATION
  Report Type: Other
  Country: US (occurrence: US)
  Receive Date: 20160311
  Receipt Date: 20160311
  Transmission Date: 20160526
  Serious: No
  Sender: FDA-Public Use
  Company Number: US-COL_20070_2015

PATIENT
  Age: 46 Year
  Sex: Female

DRUGS (1)
  1. PERIOGARD [Suspect]
     Active Substance: CHLORHEXIDINE GLUCONATE
     Indication: PRODUCT USED FOR UNKNOWN INDICATION
     Dosage: ABOUT ONE SIXTH OF THE CAP/QD BEFORE BED/
     Route: 048
     Dates: start: 20150616, end: 20150624

REACTIONS (3)
  - Abdominal pain upper [Recovered/Resolved]
  - Tooth discolouration [Recovered/Resolved]
  - Nausea [Recovered/Resolved]

NARRATIVE: CASE EVENT DATE: 201506
